FAERS Safety Report 17256550 (Version 1)
Quarter: 2020Q1

REPORT INFORMATION
  Report Type: Spontaneous
  Country: US (occurrence: US)
  Receive Date: 20200109
  Receipt Date: 20200109
  Transmission Date: 20200409
  Serious: Yes (Other)
  Sender: FDA-Public Use
  Company Number: None

PATIENT
  Age: 23 Year
  Sex: Female
  Weight: 56.25 kg

DRUGS (3)
  1. IBUPROFEN. [Concomitant]
     Active Substance: IBUPROFEN
  2. ALKA-SELTZER PLUS FLU FORMULA [Concomitant]
     Active Substance: ACETAMINOPHEN\CHLORPHENIRAMINE\DEXTROMETHORPHAN\PHENYLEPHRINE
  3. TAMIFLU, GENERIC [Suspect]
     Active Substance: OSELTAMIVIR PHOSPHATE
     Indication: INFLUENZA
     Dosage: ?          QUANTITY:1 CAPSULE(S);?
     Route: 048
     Dates: start: 20200108, end: 20200108

REACTIONS (8)
  - Delusion [None]
  - Nausea [None]
  - Vomiting [None]
  - Gait disturbance [None]
  - Communication disorder [None]
  - Insomnia [None]
  - Dizziness [None]
  - Suicidal ideation [None]

NARRATIVE: CASE EVENT DATE: 20200108
